FAERS Safety Report 6234856-7 (Version None)
Quarter: 2009Q2

REPORT INFORMATION
  Report Type: 
  Country: None (occurrence: None)
  Receive Date: 20090618
  Receipt Date: 20090610
  Transmission Date: 20091009
  Serious: No
  Sender: FDA-Public Use
  Company Number: GB-EISAI INC.-E2080-00158-SPO-GB

PATIENT
  Sex: Male

DRUGS (6)
  1. INOVELON [Suspect]
     Indication: DROP ATTACKS
     Route: 048
  2. INOVELON [Suspect]
     Indication: LEARNING DISABILITY
     Route: 048
  3. INOVELON [Suspect]
     Route: 048
  4. LEVETIRACETAM [Suspect]
     Indication: DRUG USE FOR UNKNOWN INDICATION
     Route: 048
  5. OXCARBAZEPINE [Suspect]
     Indication: DRUG USE FOR UNKNOWN INDICATION
  6. CLOBAZAM [Suspect]
     Indication: DRUG USE FOR UNKNOWN INDICATION

REACTIONS (2)
  - AGGRESSION [None]
  - DRUG INTERACTION [None]
